FAERS Safety Report 7606916-7 (Version None)
Quarter: 2011Q3

REPORT INFORMATION
  Report Type: 
  Country: None (occurrence: None)
  Receive Date: 20110713
  Receipt Date: 20110701
  Transmission Date: 20111222
  Serious: Yes (Hospitalization)
  Sender: FDA-Public Use
  Company Number: DE-ROCHE-789013

PATIENT
  Sex: Male
  Weight: 79 kg

DRUGS (2)
  1. RIBAVIRIN [Suspect]
     Route: 048
     Dates: start: 20110111, end: 20110217
  2. PEGINTERFERON ALFA-2A [Suspect]
     Route: 058
     Dates: start: 20110111, end: 20110217

REACTIONS (4)
  - ANAEMIA [None]
  - PANCYTOPENIA [None]
  - PSYCHOTIC DISORDER [None]
  - ILL-DEFINED DISORDER [None]
